FAERS Safety Report 11258356 (Version 2)
Quarter: 2015Q3

REPORT INFORMATION
  Report Type: Spontaneous
  Country: CA (occurrence: CA)
  Receive Date: 20150710
  Receipt Date: 20150811
  Transmission Date: 20151125
  Serious: Yes (Life-Threatening)
  Sender: FDA-Public Use
  Company Number: CA-ROCHE-1602883

PATIENT
  Age: 56 Year
  Sex: Female

DRUGS (16)
  1. M-ESLON [Concomitant]
     Active Substance: MORPHINE SULFATE
     Dosage: AT NIGHT
     Route: 065
  2. IRINOTECAN [Suspect]
     Active Substance: IRINOTECAN
     Indication: COLORECTAL CANCER METASTATIC
     Route: 065
     Dates: start: 20150202, end: 20150505
  3. XGEVA [Concomitant]
     Active Substance: DENOSUMAB
  4. FLUOROURACIL. [Suspect]
     Active Substance: FLUOROURACIL
     Indication: COLORECTAL CANCER METASTATIC
     Route: 065
     Dates: start: 20150202, end: 20150505
  5. TUDORZA PRESSAIR [Concomitant]
     Active Substance: ACLIDINIUM BROMIDE
     Dosage: 1 SHOT
     Route: 065
  6. DEXAMETHASONE. [Concomitant]
     Active Substance: DEXAMETHASONE
     Route: 065
  7. APO-PROCHLORAZINE [Concomitant]
     Route: 065
  8. OXALIPLATIN. [Suspect]
     Active Substance: OXALIPLATIN
     Indication: COLORECTAL CANCER METASTATIC
     Route: 065
  9. AVASTIN [Suspect]
     Active Substance: BEVACIZUMAB
     Indication: COLORECTAL CANCER METASTATIC
     Route: 042
     Dates: start: 20150202, end: 20150703
  10. MORPHIN [Concomitant]
     Active Substance: MORPHINE
  11. FUROSEMIDE TEVA [Concomitant]
     Active Substance: FUROSEMIDE
  12. M-ESLON [Concomitant]
     Active Substance: MORPHINE SULFATE
     Dosage: IN MORNING
     Route: 065
  13. SYMBICORT [Concomitant]
     Active Substance: BUDESONIDE\FORMOTEROL FUMARATE DIHYDRATE
     Dosage: 2 SHOTS
     Route: 065
  14. STATEX (CANADA) [Concomitant]
     Route: 065
  15. SALBUTAMOL SULPHATE [Concomitant]
     Active Substance: ALBUTEROL SULFATE
     Dosage: 100 MCG
     Route: 065
  16. RABEPRAZOLE [Concomitant]
     Active Substance: RABEPRAZOLE
     Route: 065

REACTIONS (3)
  - Platelet count decreased [Unknown]
  - Hypersensitivity [Unknown]
  - Treatment failure [Unknown]

NARRATIVE: CASE EVENT DATE: 20150703
